FAERS Safety Report 16136732 (Version 2)
Quarter: 2019Q2

REPORT INFORMATION
  Report Type: Spontaneous
  Country: IL (occurrence: IL)
  Receive Date: 20190401
  Receipt Date: 20190401
  Transmission Date: 20190711
  Serious: Yes (Other)
  Sender: FDA-Public Use
  Company Number: IL-TEVA-2019-IL-1032397

PATIENT
  Age: 58 Year
  Sex: Female

DRUGS (12)
  1. MOXYPEN FORTE 500 MG CAPSULES [Suspect]
     Active Substance: AMOXICILLIN
     Route: 065
     Dates: start: 20190226
  2. GLYCERINE [Concomitant]
     Active Substance: GLYCERIN
  3. TRIBEMIN [Concomitant]
     Active Substance: CYANOCOBALAMIN\PYRIDOXINE HYDROCHLORIDE\THIAMINE
  4. TERGIN [Concomitant]
  5. LANTON [Concomitant]
  6. ANSURE [Concomitant]
  7. FEXOFENADINE [Concomitant]
     Active Substance: FEXOFENADINE\FEXOFENADINE HYDROCHLORIDE
  8. CYMBALTA [Concomitant]
     Active Substance: DULOXETINE HYDROCHLORIDE
  9. AVILAC [Concomitant]
  10. ACAMOL [Concomitant]
     Active Substance: ACETAMINOPHEN
  11. FOLIC ACID. [Concomitant]
     Active Substance: FOLIC ACID
  12. LYRICA [Concomitant]
     Active Substance: PREGABALIN

REACTIONS (2)
  - Abdominal pain [Unknown]
  - Vomiting [Unknown]
